FAERS Safety Report 10846778 (Version 2)
Quarter: 2015Q1

REPORT INFORMATION
  Report Type: Spontaneous
  Country: NO (occurrence: NO)
  Receive Date: 20150220
  Receipt Date: 20150226
  Transmission Date: 20150721
  Serious: Yes (Hospitalization)
  Sender: FDA-Public Use
  Company Number: NO-009507513-1501NOR003136

PATIENT
  Age: 68 Year
  Sex: Female

DRUGS (2)
  1. REMERON [Suspect]
     Active Substance: MIRTAZAPINE
     Dosage: 45 MG, ONCE DAILY
     Route: 048
     Dates: end: 201501
  2. REMERON [Suspect]
     Active Substance: MIRTAZAPINE
     Dosage: 90 MG ONCE DAILY( 2X45MG ONCE DAILY)
     Route: 048
     Dates: start: 20150123, end: 20150126

REACTIONS (2)
  - Inappropriate schedule of drug administration [Unknown]
  - Pelvic fracture [Unknown]
